FAERS Safety Report 6538719-9 (Version None)
Quarter: 2010Q1

REPORT INFORMATION
  Report Type: 
  Country: None (occurrence: None)
  Receive Date: 20100114
  Receipt Date: 20100114
  Transmission Date: 20100710
  Serious: No
  Sender: FDA-Public Use
  Company Number: None

PATIENT

DRUGS (4)
  1. TYLENOL [Suspect]
     Indication: INSOMNIA
     Dosage: 1 CAPLET DAILY OR ODD DAYS PO TWO OR SO YEARS
     Route: 048
  2. TYLENOL [Suspect]
     Indication: MIDDLE INSOMNIA
     Dosage: 1 CAPLET DAILY OR ODD DAYS PO TWO OR SO YEARS
     Route: 048
  3. WALGREENS PAIN RELIEVER PM 25 MG WALGREEN CO. [Suspect]
     Indication: INSOMNIA
     Dosage: 1 CAPLET DAILY OR ODD DAYS PO TWO OR SO YEARS
     Route: 048
  4. WALGREENS PAIN RELIEVER PM 25 MG WALGREEN CO. [Suspect]
     Indication: MIDDLE INSOMNIA
     Dosage: 1 CAPLET DAILY OR ODD DAYS PO TWO OR SO YEARS
     Route: 048

REACTIONS (1)
  - HYPERSENSITIVITY [None]
